FAERS Safety Report 6396341-1 (Version None)
Quarter: 2009Q4

REPORT INFORMATION
  Report Type: 
  Country: None (occurrence: None)
  Receive Date: 20091012
  Receipt Date: 20090928
  Transmission Date: 20100525
  Serious: Yes (Hospitalization)
  Sender: FDA-Public Use
  Company Number: PHHY2009CA40501

PATIENT
  Sex: Female

DRUGS (7)
  1. SANDOSTATIN LAR [Suspect]
     Indication: GASTRINOMA
     Dosage: 30 MG, QMO
     Route: 030
     Dates: start: 20020101
  2. JANUVIA [Concomitant]
     Dosage: 100 MG, UNK
  3. METFORMIN HYDROCHLORIDE [Concomitant]
     Dosage: 1000 MG, BID
  4. LIPITOR [Concomitant]
     Dosage: 10 MG, UNK
  5. LOSEC [Concomitant]
     Dosage: 20 MG, UNK
  6. DESENEX [Concomitant]
     Dosage: 0.5 MG/WEEK
  7. VITAMIN D3 [Concomitant]

REACTIONS (6)
  - BACK PAIN [None]
  - HYPERTONIC BLADDER [None]
  - INCONTINENCE [None]
  - POLLAKIURIA [None]
  - RENAL PAIN [None]
  - URINARY INCONTINENCE [None]
